FAERS Safety Report 5671115-5 (Version None)
Quarter: 2008Q1

REPORT INFORMATION
  Report Type: 
  Country: None (occurrence: None)
  Receive Date: 20080317
  Receipt Date: 20080317
  Transmission Date: 20080703
  Serious: No
  Sender: FDA-Public Use
  Company Number: None

PATIENT
  Sex: Male
  Weight: 85.5 kg

DRUGS (3)
  1. CYCLOPHOSPHAMIDE [Suspect]
     Dosage: 1260 MG
  2. PENTOSTATIN [Suspect]
     Dosage: 8.4MG
  3. RITUXIMAB [Suspect]
     Dosage: 1680 MG

REACTIONS (1)
  - NEUTROPHIL COUNT DECREASED [None]
